FAERS Safety Report 6583346-0 (Version None)
Quarter: 2010Q1

REPORT INFORMATION
  Report Type: 
  Country: None (occurrence: None)
  Receive Date: 20100216
  Receipt Date: 20100208
  Transmission Date: 20100710
  Serious: Yes (Other)
  Sender: FDA-Public Use
  Company Number: US-GENENTECH-229789

PATIENT
  Sex: Female
  Weight: 109.77 kg

DRUGS (9)
  1. OMALIZUMAB [Suspect]
     Indication: ASTHMA
     Dosage: 300 MG, Q2W
     Dates: start: 20060817
  2. ADVAIR DISKUS 100/50 [Concomitant]
     Indication: ASTHMA
     Dosage: 500 A?G, BID
     Dates: start: 20060321
  3. ADVAIR DISKUS 100/50 [Concomitant]
     Dosage: 50 A?G, BID
     Dates: start: 20060321
  4. ALBUTEROL [Concomitant]
     Indication: ASTHMA
     Dosage: 180 A?G, PRN
     Dates: start: 19800101
  5. PREDNISONE [Concomitant]
     Indication: ASTHMA
     Dosage: 20 MG, UNK
     Route: 048
     Dates: start: 20060405, end: 20060411
  6. CLARINEX [Concomitant]
     Indication: RHINITIS ALLERGIC
     Dosage: 5 MG, QD
     Route: 048
     Dates: start: 20060405
  7. NASONEX [Concomitant]
     Indication: RHINITIS ALLERGIC
     Dosage: 200 A?G, QD
     Route: 048
     Dates: start: 20060405
  8. NEXIUM [Concomitant]
     Indication: GASTROOESOPHAGEAL REFLUX DISEASE
     Dosage: 40 MG, QD
     Route: 048
     Dates: start: 20050701
  9. LASIX [Concomitant]
     Indication: OEDEMA
     Dosage: 125 MG, QD
     Route: 048
     Dates: start: 20060717, end: 20060904

REACTIONS (1)
  - DYSPNOEA [None]
